FAERS Safety Report 17293347 (Version 2)
Quarter: 2020Q1

REPORT INFORMATION
  Report Type: Spontaneous
  Country: US (occurrence: US)
  Receive Date: 20200121
  Receipt Date: 20200317
  Transmission Date: 20200409
  Serious: Yes (Hospitalization, Other)
  Sender: FDA-Public Use
  Company Number: US-DRREDDYS-USA/USA/20/0118627

PATIENT
  Age: 68 Year
  Sex: Female

DRUGS (1)
  1. HEPARIN SODIUM. [Suspect]
     Active Substance: HEPARIN SODIUM
     Indication: ACUTE MYOCARDIAL INFARCTION

REACTIONS (4)
  - Heparin-induced thrombocytopenia [Recovered/Resolved]
  - Acute myocardial infarction [Recovered/Resolved]
  - Thrombosis [Recovered/Resolved]
  - Coronary artery occlusion [Recovered/Resolved]
